FAERS Safety Report 24585651 (Version 1)
Quarter: 2024Q4

REPORT INFORMATION
  Report Type: Spontaneous
  Country: ES (occurrence: ES)
  Receive Date: 20241106
  Receipt Date: 20241106
  Transmission Date: 20250115
  Serious: Yes (Other)
  Sender: NOVARTIS
  Company Number: None

PATIENT
  Age: 45 Year
  Sex: Male

DRUGS (1)
  1. COSENTYX [Suspect]
     Active Substance: SECUKINUMAB
     Indication: Hidradenitis
     Dosage: UNK (INDUCCI?N 300 MG SEMANAS 0,1,2,3,4 DESPU?S MENSUAL DE MANTENIMIENTO)
     Route: 058
     Dates: start: 20240916

REACTIONS (5)
  - Diarrhoea haemorrhagic [Recovered/Resolved]
  - Asthenia [Recovering/Resolving]
  - Affective disorder [Recovered/Resolved]
  - Pruritus [Not Recovered/Not Resolved]
  - Dry mouth [Not Recovered/Not Resolved]

NARRATIVE: CASE EVENT DATE: 20240923
